FAERS Safety Report 8548795-X (Version None)
Quarter: 2012Q3

REPORT INFORMATION
  Report Type: 
  Country: None (occurrence: None)
  Receive Date: 20120730
  Receipt Date: 20120716
  Transmission Date: 20120928
  Serious: Yes (Other)
  Sender: FDA-Public Use
  Company Number: GB-RANBAXY-2012RR-58259

PATIENT
  Sex: Female

DRUGS (1)
  1. CLARITHROMYCIN [Suspect]
     Indication: LOWER RESPIRATORY TRACT INFECTION
     Dosage: TO BE TAKEN EVERY 12 HOURS
     Route: 065

REACTIONS (3)
  - HYPERVIGILANCE [None]
  - INSOMNIA [None]
  - FATIGUE [None]
